FAERS Safety Report 10044200 (Version 1)
Quarter: 2014Q1

REPORT INFORMATION
  Report Type: Spontaneous
  Country: US (occurrence: US)
  Receive Date: 20140328
  Receipt Date: 20140328
  Transmission Date: 20141002
  Serious: No
  Sender: FDA-Public Use
  Company Number: US-BAYER-2014-039978

PATIENT
  Age: 73 Year
  Sex: Female
  Weight: 72 kg

DRUGS (3)
  1. ALEVE TABLET [Suspect]
     Indication: ANALGESIC THERAPY
     Dosage: 1 DF, OTHER FREQUENCY
     Route: 048
     Dates: start: 20140310
  2. ATORVASTATIN [Concomitant]
     Dosage: 10 MG, UNK
  3. LISINOPRIL [Concomitant]
     Dosage: 10 MG, UNK

REACTIONS (1)
  - Dysphagia [Recovered/Resolved]
